FAERS Safety Report 14831850 (Version 2)
Quarter: 2018Q2

REPORT INFORMATION
  Report Type: Spontaneous
  Country: JP (occurrence: JP)
  Receive Date: 20180501
  Receipt Date: 20180502
  Transmission Date: 20180711
  Serious: Yes (Life-Threatening, Hospitalization, Other)
  Sender: FDA-Public Use
  Company Number: JP-ROCHE-2113479

PATIENT
  Age: 7 Decade
  Sex: Male

DRUGS (3)
  1. HERCEPTIN [Suspect]
     Active Substance: TRASTUZUMAB
     Indication: GASTRIC CANCER
     Dosage: DOSAGE IS UNCERTAIN.
     Route: 041
  2. XELODA [Suspect]
     Active Substance: CAPECITABINE
     Indication: GASTRIC CANCER
     Dosage: DOSAGE IS UNCERTAIN.
     Route: 048
  3. OXALIPLATIN. [Concomitant]
     Active Substance: OXALIPLATIN
     Indication: GASTRIC CANCER
     Dosage: DOSAGE IS UNCERTAIN.
     Route: 041

REACTIONS (9)
  - Diarrhoea [Unknown]
  - Dyspnoea [Unknown]
  - White blood cell count decreased [Unknown]
  - Stomatitis [Unknown]
  - Metastases to bone marrow [Unknown]
  - Platelet count decreased [Unknown]
  - Pyrexia [Unknown]
  - Neutrophil count decreased [Unknown]
  - Nausea [Unknown]
